FAERS Safety Report 7026473-6 (Version None)
Quarter: 2010Q4

REPORT INFORMATION
  Report Type: 
  Country: None (occurrence: None)
  Receive Date: 20101004
  Receipt Date: 20100923
  Transmission Date: 20110411
  Serious: Yes (Other)
  Sender: FDA-Public Use
  Company Number: GB-ASTRAZENECA-2010SE44797

PATIENT
  Age: 41 Year
  Sex: Female

DRUGS (1)
  1. SYMBICORT [Suspect]
     Indication: ASTHMA
     Dosage: 200/6 UG
     Route: 055
     Dates: start: 20080101

REACTIONS (1)
  - CEREBRAL HAEMORRHAGE [None]
